FAERS Safety Report 9699012 (Version 1)
Quarter: 2013Q4

REPORT INFORMATION
  Report Type: Spontaneous
  Country: US (occurrence: US)
  Receive Date: 20131120
  Receipt Date: 20131120
  Transmission Date: 20140711
  Serious: Yes (Other)
  Sender: FDA-Public Use
  Company Number: US-ELI_LILLY_AND_COMPANY-US201311003190

PATIENT
  Sex: Male

DRUGS (1)
  1. HUMULIN 30% REGULAR, 70% NPH [Suspect]
     Indication: TYPE 2 DIABETES MELLITUS
     Dosage: UNK, PRN
     Route: 065
     Dates: start: 201310

REACTIONS (3)
  - Eye haemorrhage [Unknown]
  - Visual impairment [Not Recovered/Not Resolved]
  - Injection site scar [Not Recovered/Not Resolved]
